FAERS Safety Report 8025165-4 (Version None)
Quarter: 2012Q1

REPORT INFORMATION
  Report Type: 
  Country: None (occurrence: None)
  Receive Date: 20120105
  Receipt Date: 20120103
  Transmission Date: 20120608
  Serious: Yes (Other)
  Sender: FDA-Public Use
  Company Number: US-GLAXOSMITHKLINE-A0941090A

PATIENT
  Age: 15 Year
  Sex: Female

DRUGS (3)
  1. CONCERTA [Concomitant]
  2. LAMICTAL XR [Suspect]
     Indication: GRAND MAL CONVULSION
     Dosage: 200MG TWICE PER DAY
     Route: 048
     Dates: start: 20110523
  3. LAMICTAL [Suspect]
     Indication: PRODUCT USED FOR UNKNOWN INDICATION
     Route: 065

REACTIONS (3)
  - GRAND MAL CONVULSION [None]
  - CONVULSION [None]
  - DRUG INEFFECTIVE [None]
